FAERS Safety Report 11274364 (Version 1)
Quarter: 2015Q3

REPORT INFORMATION
  Report Type: Spontaneous
  Country: FR (occurrence: FR)
  Receive Date: 20150715
  Receipt Date: 20150715
  Transmission Date: 20151125
  Serious: Yes (Other)
  Sender: FDA-Public Use
  Company Number: FR-MYLANLABS-2015M1023294

PATIENT

DRUGS (2)
  1. FONDAPARINUX [Suspect]
     Active Substance: FONDAPARINUX
     Indication: DEEP VEIN THROMBOSIS
     Dosage: UNK
     Dates: end: 201412
  2. FONDAPARINUX [Suspect]
     Active Substance: FONDAPARINUX
     Indication: PULMONARY EMBOLISM
     Dosage: 7.5 MG, UNK
     Dates: start: 2015

REACTIONS (2)
  - Off label use [Unknown]
  - Abdominal wall haematoma [Unknown]

NARRATIVE: CASE EVENT DATE: 201412
